FAERS Safety Report 5078395-8 (Version None)
Quarter: 2006Q3

REPORT INFORMATION
  Report Type: 
  Country: None (occurrence: None)
  Receive Date: 20060808
  Receipt Date: 20051223
  Transmission Date: 20061208
  Serious: Yes (Death)
  Sender: FDA-Public Use
  Company Number: NL200511002982

PATIENT
  Age: 70 Year
  Sex: Male
  Weight: 76.1 kg

DRUGS (6)
  1. SOMATROPIN (SOMATROPIN) VIAL [Suspect]
     Indication: GROWTH HORMONE DEFICIENCY
     Dosage: 0.4 MG, SUBCUTANEOUS
     Route: 058
  2. DEPAKENE [Concomitant]
  3. HYDROCORTISONE [Concomitant]
  4. LEVOTHYROXINE SODIUM [Concomitant]
  5. SUSTANON (TESTOSTERONE CAPRINOYLACETATE, TESTOSTERONE ISOCAPROATE, TES [Concomitant]
  6. CAPOTEN [Concomitant]

REACTIONS (1)
  - GLIOBLASTOMA MULTIFORME [None]
